FAERS Safety Report 25848188 (Version 1)
Quarter: 2025Q3

REPORT INFORMATION
  Report Type: Report from Study
  Country: US (occurrence: US)
  Receive Date: 20250925
  Receipt Date: 20250925
  Transmission Date: 20251020
  Serious: Yes (Hospitalization, Other)
  Sender: TAKEDA
  Company Number: US-TAKEDA-2025TUS083348

PATIENT
  Sex: Female

DRUGS (1)
  1. MARIBAVIR [Suspect]
     Active Substance: MARIBAVIR
     Indication: Pneumonia cytomegaloviral
     Dosage: 400 MILLIGRAM, BID
     Dates: start: 20250829

REACTIONS (1)
  - Plasma cell myeloma [Unknown]
